FAERS Safety Report 11929677 (Version 1)
Quarter: 2016Q1

REPORT INFORMATION
  Report Type: Spontaneous
  Country: US (occurrence: None)
  Receive Date: 20160119
  Receipt Date: 20160119
  Transmission Date: 20160526
  Serious: Yes (Life-Threatening, Hospitalization)
  Sender: FDA-Public Use
  Company Number: None

PATIENT
  Age: 74 Year
  Sex: Female
  Weight: 70.31 kg

DRUGS (3)
  1. CLONIDINE. [Concomitant]
     Active Substance: CLONIDINE
  2. PREDNISONE. [Concomitant]
     Active Substance: PREDNISONE
  3. AMIODARONE 200MG [Suspect]
     Active Substance: AMIODARONE
     Indication: HEART RATE IRREGULAR
     Route: 048
     Dates: start: 20151029, end: 20151112

REACTIONS (7)
  - Blister [None]
  - Dyspnoea [None]
  - Swelling face [None]
  - Visual acuity reduced [None]
  - Eye haemorrhage [None]
  - Movement disorder [None]
  - Local swelling [None]

NARRATIVE: CASE EVENT DATE: 20151029
